FAERS Safety Report 4319248-X (Version None)
Quarter: 2004Q1

REPORT INFORMATION
  Report Type: 
  Country: None (occurrence: None)
  Receive Date: 20040316
  Receipt Date: 20040301
  Transmission Date: 20041129
  Serious: Yes (Hospitalization)
  Sender: FDA-Public Use
  Company Number: AUS068105

PATIENT
  Age: 83 Year
  Sex: Female

DRUGS (9)
  1. ARANESP [Suspect]
     Indication: ANAEMIA
     Dosage: 30 MCG, 1 IN 1 WEEKS
     Dates: start: 20030523, end: 20030530
  2. THYROXINE [Concomitant]
  3. CALCITRIOL [Concomitant]
  4. FUROSEMIDE [Concomitant]
  5. SIMVASTATIN [Concomitant]
  6. AMLODIPINE [Concomitant]
  7. PRAZOSIN HCL [Concomitant]
  8. INSULIN INITARD NORDISK [Concomitant]
  9. FLUTICASONE/SALMETEROL [Concomitant]

REACTIONS (1)
  - DYSPNOEA [None]
